FAERS Safety Report 10953934 (Version 1)
Quarter: 2015Q1

REPORT INFORMATION
  Report Type: Spontaneous
  Country: US (occurrence: None)
  Receive Date: 20150226
  Receipt Date: 20150226
  Transmission Date: 20150721
  Serious: Yes (Life-Threatening)
  Sender: FDA-Public Use
  Company Number: TAP2004Q00830

PATIENT
  Age: 50 Year
  Sex: Female
  Weight: 51.71 kg

DRUGS (3)
  1. CENTRUM (CENTRUM) [Concomitant]
  2. ESTRACE (ESTRADIOL) [Concomitant]
  3. PREVACID [Suspect]
     Active Substance: LANSOPRAZOLE
     Indication: GASTROOESOPHAGEAL REFLUX DISEASE
     Route: 048
     Dates: start: 20040625, end: 20040625

REACTIONS (8)
  - Hypotension [None]
  - Oedema peripheral [None]
  - Anaphylactoid reaction [None]
  - Pruritus generalised [None]
  - Bradycardia [None]
  - Hypoaesthesia oral [None]
  - Swelling face [None]
  - Dizziness [None]

NARRATIVE: CASE EVENT DATE: 20040625
